FAERS Safety Report 5771720-1 (Version None)
Quarter: 2008Q2

REPORT INFORMATION
  Report Type: 
  Country: None (occurrence: None)
  Receive Date: 20080613
  Receipt Date: 20080604
  Transmission Date: 20081010
  Serious: Yes (Death, Life-Threatening, Other)
  Sender: FDA-Public Use
  Company Number: JP-SANOFI-SYNTHELABO-F01200701391

PATIENT
  Sex: Female

DRUGS (9)
  1. ELPLAT [Suspect]
     Indication: RECTAL CANCER METASTATIC
     Route: 042
     Dates: start: 20070912, end: 20070912
  2. ALDACTONE [Concomitant]
     Dosage: UNK
     Dates: start: 20070829, end: 20071030
  3. LASIX [Concomitant]
     Dosage: UNK
     Dates: start: 20070829, end: 20071030
  4. FAMOTIDINE [Concomitant]
     Dosage: UNK
     Dates: start: 20070820, end: 20071030
  5. NAPROXEN [Concomitant]
     Dosage: UNK
     Dates: start: 20070417, end: 20070915
  6. BEVACIZUMAB [Suspect]
     Route: 042
     Dates: start: 20071024, end: 20071024
  7. ISOVORIN [Suspect]
     Dosage: UNK
     Route: 042
     Dates: start: 20071024, end: 20071025
  8. IRINOTECAN HCL [Concomitant]
     Dosage: UNK
     Route: 042
     Dates: start: 20071010, end: 20071024
  9. FLUOROURACIL [Suspect]
     Dosage: UNK
     Route: 042
     Dates: start: 20071024, end: 20071025

REACTIONS (4)
  - DISEASE PROGRESSION [None]
  - HAEMOLYTIC ANAEMIA [None]
  - LEUKOPENIA [None]
  - RECTAL PERFORATION [None]
